FAERS Safety Report 9228509 (Version 3)
Quarter: 2014Q1

REPORT INFORMATION
  Report Type: Spontaneous
  Country: FR (occurrence: FR)
  Receive Date: 20130412
  Receipt Date: 20140317
  Transmission Date: 20141002
  Serious: Yes (Other)
  Sender: FDA-Public Use
  Company Number: FR-GLAXOSMITHKLINE-B0881976A

PATIENT
  Age: 5 Year
  Sex: Male

DRUGS (2)
  1. LAMICTAL [Suspect]
     Indication: EPILEPSY
     Dosage: 200MG PER DAY
     Route: 064
  2. SPECIAFOLDINE [Concomitant]
     Indication: PRODUCT USED FOR UNKNOWN INDICATION
     Route: 064

REACTIONS (7)
  - Autism spectrum disorder [Unknown]
  - Speech disorder developmental [Unknown]
  - Abnormal behaviour [Unknown]
  - Agitation [Unknown]
  - Motor dysfunction [Unknown]
  - Impulse-control disorder [Unknown]
  - Foetal exposure during pregnancy [Unknown]
